FAERS Safety Report 7750166-0 (Version None)
Quarter: 2011Q3

REPORT INFORMATION
  Report Type: 
  Country: None (occurrence: None)
  Receive Date: 20110914
  Receipt Date: 20110914
  Transmission Date: 20111222
  Serious: Yes (Death)
  Sender: FDA-Public Use
  Company Number: None

PATIENT
  Age: 62 Year
  Sex: Female
  Weight: 80.739 kg

DRUGS (2)
  1. ENBREL [Suspect]
     Indication: ARTHRITIS
     Dosage: 50/MG
     Route: 058
     Dates: start: 20110612, end: 20110612
  2. ENBREL [Suspect]
     Indication: PSORIASIS
     Dosage: 50/MG
     Route: 058
     Dates: start: 20110612, end: 20110612

REACTIONS (4)
  - BILE DUCT STONE [None]
  - INJECTION SITE URTICARIA [None]
  - SEPTIC SHOCK [None]
  - INFLUENZA LIKE ILLNESS [None]
